FAERS Safety Report 25223835 (Version 1)
Quarter: 2025Q2

REPORT INFORMATION
  Report Type: Spontaneous
  Country: US (occurrence: US)
  Receive Date: 20250422
  Receipt Date: 20250422
  Transmission Date: 20250716
  Serious: Yes (Hospitalization, Other)
  Sender: RANBAXY
  Company Number: US-SUN PHARMACEUTICAL INDUSTRIES LTD-2025R1-504562

PATIENT
  Age: 23 Year
  Sex: Female

DRUGS (1)
  1. ACETAMINOPHEN [Suspect]
     Active Substance: ACETAMINOPHEN
     Indication: Abdominal pain
     Route: 065

REACTIONS (6)
  - Overdose [Unknown]
  - Exposure during pregnancy [Unknown]
  - Toxicity to various agents [Unknown]
  - Acute hepatic failure [Unknown]
  - Brain oedema [Recovered/Resolved]
  - Encephalopathy [Recovering/Resolving]
